FAERS Safety Report 4289145-7 (Version None)
Quarter: 2004Q1

REPORT INFORMATION
  Report Type: 
  Country: None (occurrence: None)
  Receive Date: 20040206
  Receipt Date: 20040203
  Transmission Date: 20041129
  Serious: Yes (Other)
  Sender: FDA-Public Use
  Company Number: STA-AE-04-MTX-043

PATIENT
  Sex: Female

DRUGS (1)
  1. LANTAREL (METHOTREXATE, UNSPEC) [Suspect]
     Indication: RHEUMATOID ARTHRITIS
     Dosage: 20 MG 1X PER 1 WK

REACTIONS (1)
  - DYSPNOEA EXERTIONAL [None]
